FAERS Safety Report 9896806 (Version 1)
Quarter: 2014Q1

REPORT INFORMATION
  Report Type: Spontaneous
  Country: US (occurrence: US)
  Receive Date: 20140213
  Receipt Date: 20140213
  Transmission Date: 20141002
  Serious: No
  Sender: FDA-Public Use
  Company Number: US-BRISTOL-MYERS SQUIBB COMPANY-19212927

PATIENT
  Sex: Female

DRUGS (1)
  1. ORENCIA [Suspect]
     Dosage: LOT#:(2K72136,3B73684):EXP:MAY 2015,OCT2015:NDC#:003218710,0003218710?INFUSION ON 22AUG13.
     Route: 042

REACTIONS (1)
  - Hypersensitivity [Recovered/Resolved]
